FAERS Safety Report 23952428 (Version 1)
Quarter: 2024Q2

REPORT INFORMATION
  Report Type: Spontaneous
  Country: US (occurrence: None)
  Receive Date: 20240607
  Receipt Date: 20240607
  Transmission Date: 20240716
  Serious: Yes (unspecified)
  Sender: FDA-Public Use
  Company Number: None

PATIENT
  Age: 76 Year
  Sex: Male
  Weight: 90 kg

DRUGS (2)
  1. MONTELUKAST [Suspect]
     Active Substance: MONTELUKAST SODIUM
     Indication: Hypersensitivity
     Dosage: OTHER QUANTITY : 1 TABLET(S);?FREQUENCY : DAILY;?
     Route: 048
     Dates: start: 20240605, end: 20240605
  2. MONTELUKAST [Suspect]
     Active Substance: MONTELUKAST SODIUM
     Indication: Nasal congestion

REACTIONS (7)
  - Feeling abnormal [None]
  - Somnolence [None]
  - Balance disorder [None]
  - Vision blurred [None]
  - Malaise [None]
  - Hallucination, visual [None]
  - Eye disorder [None]

NARRATIVE: CASE EVENT DATE: 20240605
